FAERS Safety Report 6199844-8 (Version None)
Quarter: 2009Q2

REPORT INFORMATION
  Report Type: 
  Country: None (occurrence: None)
  Receive Date: 20090522
  Receipt Date: 20070912
  Transmission Date: 20091009
  Serious: Yes (Hospitalization, Other)
  Sender: FDA-Public Use
  Company Number: US-ALEXION-A200700060

PATIENT
  Sex: Male

DRUGS (32)
  1. SOLIRIS [Suspect]
     Indication: PAROXYSMAL NOCTURNAL HAEMOGLOBINURIA
     Dosage: 600 MG, SINGLE
     Route: 042
     Dates: start: 20070502, end: 20070502
  2. SOLIRIS [Suspect]
     Dosage: 600 MG, SINGLE
     Route: 042
     Dates: start: 20070509, end: 20070509
  3. SOLIRIS [Suspect]
     Dosage: 600 MG, SINGLE
     Route: 042
     Dates: start: 20070516, end: 20070516
  4. SOLIRIS [Suspect]
     Dosage: 600 MG, SINGLE
     Route: 042
     Dates: start: 20070523, end: 20070523
  5. SOLIRIS [Suspect]
     Dosage: 900 MG, SINGLE
     Route: 042
     Dates: start: 20070530, end: 20070530
  6. SOLIRIS [Suspect]
     Dosage: 900 MG, SINGLE
     Route: 042
     Dates: start: 20070601, end: 20070601
  7. SOLIRIS [Suspect]
     Dosage: 900 MG, SINGLE
     Route: 042
     Dates: start: 20070601, end: 20070601
  8. SOLIRIS [Suspect]
     Dosage: 900 MG, SINGLE
     Dates: start: 20070701, end: 20070701
  9. SOLIRIS [Suspect]
     Dosage: 900 MG, SINGLE
     Dates: start: 20070701, end: 20070701
  10. SOLIRIS [Suspect]
     Dosage: 900 MG, SINGLE
     Route: 042
     Dates: start: 20070801, end: 20070801
  11. SOLIRIS [Suspect]
     Dosage: 900 MG, SINGLE
     Route: 042
     Dates: start: 20070801, end: 20070801
  12. SOLIRIS [Suspect]
     Dosage: 900 MG, SINGLE
     Route: 042
     Dates: start: 20070905, end: 20070905
  13. SOLIRIS [Suspect]
     Dosage: 900 MG, SINGLE
     Route: 042
     Dates: start: 20070919, end: 20070919
  14. SOLIRIS [Suspect]
     Dosage: 900 MG, SINGLE
     Route: 042
     Dates: start: 20070928, end: 20070928
  15. SOLIRIS [Suspect]
     Dosage: 900 MG, SINGLE
     Route: 042
     Dates: start: 20071002, end: 20071002
  16. SOLIRIS [Suspect]
     Dosage: 900 MG, SINGLE
     Route: 042
     Dates: start: 20071026, end: 20071026
  17. SOLIRIS [Suspect]
     Dosage: 900 MG, SINGLE
     Route: 042
     Dates: start: 20071109, end: 20071109
  18. SOLIRIS [Suspect]
     Dosage: 900 MG, SINGLE
     Route: 042
     Dates: start: 20071123, end: 20071123
  19. SOLIRIS [Suspect]
     Dosage: 900 MG, SINGLE
     Route: 042
     Dates: start: 20071207, end: 20071207
  20. SOLIRIS [Suspect]
     Dosage: 900 MG, SINGLE
     Route: 042
     Dates: start: 20071221, end: 20071221
  21. CEFTIN [Suspect]
     Indication: INFECTION
     Route: 042
     Dates: start: 20080101, end: 20080101
  22. OXYCONTIN [Concomitant]
     Dosage: 400 MG, Q12H
     Route: 048
  23. PHENERGAN HCL [Concomitant]
     Indication: NAUSEA
     Dosage: 25 MG, Q4H, PRN
     Route: 048
  24. PHENERGAN HCL [Concomitant]
     Indication: VOMITING
  25. FLONASE [Concomitant]
     Indication: DYSPNOEA
     Dosage: 1 SPRAY PRN
  26. FRAGMIN [Concomitant]
  27. ALBUTEROL [Concomitant]
     Dosage: 2 PUFFS, QID, PRN
  28. PROTONIX /01263201/ [Concomitant]
     Dosage: 40 MG, QD
  29. CLONAZEPAM [Concomitant]
     Dosage: 1.5 MG, BID
     Route: 048
  30. SPIRIVA [Concomitant]
     Dosage: 18 MCG, QD
  31. ADVAIR HFA [Concomitant]
     Dosage: 1 PUFF, BID
  32. CYMBALTA [Concomitant]
     Dosage: 60 MG, QD

REACTIONS (11)
  - CHOLECYSTITIS ACUTE [None]
  - CHOLELITHIASIS [None]
  - EMPHYSEMA [None]
  - HAEMOLYSIS [None]
  - LIP SWELLING [None]
  - PNEUMONIA VIRAL [None]
  - RESPIRATORY FAILURE [None]
  - SEPSIS [None]
  - SWELLING FACE [None]
  - SWOLLEN TONGUE [None]
  - TOOTH EXTRACTION [None]
